FAERS Safety Report 7836731 (Version 3)
Quarter: 2013Q2

REPORT INFORMATION
  Report Type: Spontaneous
  Country: US (occurrence: US)
  Receive Date: 20110302
  Receipt Date: 20130614
  Transmission Date: 20140414
  Serious: Yes (Hospitalization)
  Sender: FDA-Public Use
  Company Number: US-B.I. PHARMACEUTICALS,INC./RIDGEFIELD-2011-BP-03282BP

PATIENT
  Age: 77 Year
  Sex: Male

DRUGS (9)
  1. COMBIVENT INHALATION AEROSOL [Suspect]
     Indication: CHRONIC OBSTRUCTIVE PULMONARY DISEASE
     Dosage: 4 PUF
     Route: 055
     Dates: start: 2001, end: 201002
  2. COMBIVENT INHALATION AEROSOL [Suspect]
     Dosage: 10 PUF
     Route: 055
     Dates: start: 201002
  3. COMBIVENT INHALATION AEROSOL [Suspect]
     Dosage: 12 PUF
     Route: 055
  4. COMBIVENT [Suspect]
     Indication: CHRONIC OBSTRUCTIVE PULMONARY DISEASE
     Route: 055
     Dates: start: 201301
  5. OXYGEN [Concomitant]
     Indication: CHRONIC OBSTRUCTIVE PULMONARY DISEASE
  6. PROVENTIL [Concomitant]
     Indication: CHRONIC OBSTRUCTIVE PULMONARY DISEASE
  7. FLOVENT HFA [Concomitant]
     Indication: ASTHMA
     Route: 055
     Dates: start: 2012
  8. FLUTICASONE PALMINATE [Concomitant]
     Indication: NASAL CONGESTION
     Dosage: 100 MG
     Route: 045
     Dates: start: 2011
  9. CLARITIN [Concomitant]
     Indication: MULTIPLE ALLERGIES
     Dosage: 10 MG
     Route: 048
     Dates: start: 1998

REACTIONS (16)
  - Dyspnoea [Not Recovered/Not Resolved]
  - Gastrooesophageal reflux disease [Not Recovered/Not Resolved]
  - Dyspepsia [Not Recovered/Not Resolved]
  - Dysphagia [Not Recovered/Not Resolved]
  - Dysphonia [Not Recovered/Not Resolved]
  - Anxiety [Not Recovered/Not Resolved]
  - Nasal congestion [Not Recovered/Not Resolved]
  - Rhinorrhoea [Not Recovered/Not Resolved]
  - Urinary retention [Not Recovered/Not Resolved]
  - Nasal dryness [Not Recovered/Not Resolved]
  - Eructation [Not Recovered/Not Resolved]
  - Diverticulum oesophageal [Not Recovered/Not Resolved]
  - Saliva altered [Not Recovered/Not Resolved]
  - Cough [Not Recovered/Not Resolved]
  - Abnormal loss of weight [Not Recovered/Not Resolved]
  - Device issue [Recovered/Resolved]
